FAERS Safety Report 7297489-X (Version None)
Quarter: 2011Q1

REPORT INFORMATION
  Report Type: 
  Country: None (occurrence: None)
  Receive Date: 20110216
  Receipt Date: 20110204
  Transmission Date: 20110831
  Serious: Yes (Hospitalization, Other)
  Sender: FDA-Public Use
  Company Number: IT-ELI_LILLY_AND_COMPANY-IT201102001117

PATIENT
  Sex: Female

DRUGS (8)
  1. HUMALOG [Suspect]
     Dosage: UNK, UNKNOWN
     Route: 058
     Dates: start: 20101201
  2. DOXAZOSINA [Concomitant]
     Dosage: 8 MG, UNKNOWN
     Route: 048
  3. EUTIROX [Concomitant]
     Dosage: 1 D/F, UNKNOWN
     Route: 048
  4. DIURESIX [Concomitant]
     Dosage: 1 D/F, UNKNOWN
  5. NITRODERM [Concomitant]
     Route: 062
  6. HUMALOG [Suspect]
     Indication: DIABETES MELLITUS
     Dosage: 34 IU, DAILY (1/D)
     Route: 058
     Dates: start: 20090101, end: 20101220
  7. METFORMIN HCL [Concomitant]
     Indication: DIABETES MELLITUS
     Dosage: 3 G, DAILY (1/D)
     Route: 048
     Dates: start: 20090101, end: 20101220
  8. ENALAPRIL [Concomitant]
     Dosage: 20 MG, UNKNOWN
     Route: 048

REACTIONS (1)
  - HYPOGLYCAEMIC COMA [None]
